FAERS Safety Report 25270191 (Version 2)
Quarter: 2025Q2

REPORT INFORMATION
  Report Type: Spontaneous
  Country: US (occurrence: US)
  Receive Date: 20250505
  Receipt Date: 20250506
  Transmission Date: 20250716
  Serious: Yes (Other)
  Sender: PFIZER
  Company Number: US-PFIZER INC-202500093097

PATIENT
  Age: 69 Year
  Sex: Female

DRUGS (4)
  1. MEKTOVI [Suspect]
     Active Substance: BINIMETINIB
  2. MEKTOVI [Suspect]
     Active Substance: BINIMETINIB
     Dosage: 1 TAB 45MG PO Q12 HR
     Route: 048
  3. BRAFTOVI [Suspect]
     Active Substance: ENCORAFENIB
  4. BRAFTOVI [Suspect]
     Active Substance: ENCORAFENIB
     Dosage: 450 MG PO QDAY
     Route: 048

REACTIONS (1)
  - Melanoma recurrent [Unknown]
